FAERS Safety Report 10266020 (Version 1)
Quarter: 2014Q2

REPORT INFORMATION
  Report Type: Spontaneous
  Country: CN (occurrence: CN)
  Receive Date: 20140627
  Receipt Date: 20140627
  Transmission Date: 20141212
  Serious: Yes (Other)
  Sender: FDA-Public Use
  Company Number: CN-BRISTOL-MYERS SQUIBB COMPANY-21098942

PATIENT
  Age: 41 Year
  Sex: Male
  Weight: 76 kg

DRUGS (2)
  1. GLUCOPHAGE TABS [Suspect]
     Indication: HYPERGLYCAEMIA
     Route: 048
     Dates: start: 20130524, end: 20130527
  2. ASPIRIN [Suspect]
     Indication: ANTICOAGULANT THERAPY
     Route: 048
     Dates: start: 20130524, end: 20130527

REACTIONS (1)
  - Gastrointestinal haemorrhage [Recovering/Resolving]
